FAERS Safety Report 9628345 (Version 1)
Quarter: 2013Q4

REPORT INFORMATION
  Report Type: Spontaneous
  Country: JP (occurrence: JP)
  Receive Date: 20131017
  Receipt Date: 20131017
  Transmission Date: 20140711
  Serious: Yes (Other)
  Sender: FDA-Public Use
  Company Number: JP-ASTRAZENECA-2013SE75577

PATIENT
  Sex: 0

DRUGS (1)
  1. PULMICORT RESPULES [Suspect]
     Route: 055

REACTIONS (1)
  - Convulsion [Unknown]
